FAERS Safety Report 9856737 (Version 1)
Quarter: 2014Q1

REPORT INFORMATION
  Report Type: Spontaneous
  Country: FR (occurrence: FR)
  Receive Date: 20140130
  Receipt Date: 20140130
  Transmission Date: 20141002
  Serious: Yes (Other)
  Sender: FDA-Public Use
  Company Number: FR-GLAXOSMITHKLINE-B0964494A

PATIENT
  Age: 10 Year
  Sex: Female

DRUGS (2)
  1. SORIATANE [Suspect]
     Indication: DACTYLITIS
     Dosage: 10MG PER DAY
     Route: 048
     Dates: start: 20120814, end: 20121205
  2. DERMOVAL [Concomitant]
     Indication: PULPITIS DENTAL
     Route: 065

REACTIONS (2)
  - Tooth resorption [Not Recovered/Not Resolved]
  - Hypercholesterolaemia [Not Recovered/Not Resolved]
